FAERS Safety Report 8376385-0 (Version None)
Quarter: 2012Q2

REPORT INFORMATION
  Report Type: 
  Country: None (occurrence: None)
  Receive Date: 20120522
  Receipt Date: 20120515
  Transmission Date: 20120825
  Serious: Yes (Other)
  Sender: FDA-Public Use
  Company Number: PHHY2012US041841

PATIENT

DRUGS (4)
  1. VALPROIC ACID [Suspect]
     Route: 064
  2. CARBAMAZEPINE [Suspect]
     Route: 064
  3. PHENYTOIN SODIUM CAP [Suspect]
     Route: 064
  4. LAMOTRIGINE [Suspect]
     Route: 064

REACTIONS (4)
  - COGNITIVE DISORDER [None]
  - MENTAL DISABILITY [None]
  - FOETAL EXPOSURE DURING PREGNANCY [None]
  - INTELLIGENCE TEST ABNORMAL [None]
